FAERS Safety Report 16901458 (Version 1)
Quarter: 2019Q4

REPORT INFORMATION
  Report Type: Spontaneous
  Country: GB (occurrence: GB)
  Receive Date: 20191009
  Receipt Date: 20191009
  Transmission Date: 20200122
  Serious: Yes (Disabling, Other)
  Sender: FDA-Public Use
  Company Number: GB-AUROBINDO-AUR-APL-2019-065449

PATIENT
  Age: 27 Year
  Sex: Female
  Weight: 60 kg

DRUGS (1)
  1. FLUOXETINE [Suspect]
     Active Substance: FLUOXETINE HYDROCHLORIDE
     Indication: DEPRESSION
     Dosage: 60 MILLIGRAM, ONCE A DAY
     Route: 048
     Dates: start: 2012, end: 2014

REACTIONS (1)
  - Female orgasmic disorder [Not Recovered/Not Resolved]

NARRATIVE: CASE EVENT DATE: 2013
